FAERS Safety Report 4786570-2 (Version None)
Quarter: 2005Q3

REPORT INFORMATION
  Report Type: 
  Country: None (occurrence: None)
  Receive Date: 20050927
  Receipt Date: 20050607
  Transmission Date: 20060218
  Serious: No
  Sender: FDA-Public Use
  Company Number: USA050699920

PATIENT
  Age: 7 Year
  Sex: Female

DRUGS (4)
  1. STRATTERA [Suspect]
     Dosage: 25 MG DAY
     Dates: end: 20050519
  2. REMERON [Concomitant]
  3. ABILIFY [Concomitant]
  4. CLONIDINE [Concomitant]

REACTIONS (2)
  - ELECTROCARDIOGRAM ABNORMAL [None]
  - TACHYCARDIA [None]
